FAERS Safety Report 12355429 (Version 1)
Quarter: 2016Q2

REPORT INFORMATION
  Report Type: Spontaneous
  Country: US (occurrence: US)
  Receive Date: 20160511
  Receipt Date: 20160511
  Transmission Date: 20160815
  Serious: No
  Sender: FDA-Public Use
  Company Number: US-FRI-1000082415

PATIENT
  Sex: Female

DRUGS (2)
  1. FETZIMA [Suspect]
     Active Substance: LEVOMILNACIPRAN HYDROCHLORIDE
     Route: 048
  2. FETZIMA [Suspect]
     Active Substance: LEVOMILNACIPRAN HYDROCHLORIDE
     Indication: DEPRESSION
     Route: 048
     Dates: start: 2015

REACTIONS (1)
  - Pain in jaw [Not Recovered/Not Resolved]
